FAERS Safety Report 21729394 (Version 11)
Quarter: 2024Q4

REPORT INFORMATION
  Report Type: Report from Study
  Country: US (occurrence: US)
  Receive Date: 20221214
  Receipt Date: 20241231
  Transmission Date: 20250114
  Serious: Yes (Other)
  Sender: TAKEDA
  Company Number: US-TAKEDA-US202028733

PATIENT
  Age: 33 Year
  Sex: Female

DRUGS (4)
  1. VON WILLEBRAND FACTOR (RECOMBINANT) [Suspect]
     Active Substance: VON WILLEBRAND FACTOR (RECOMBINANT)
     Indication: Menstrual disorder
     Dosage: 3500 INTERNATIONAL UNIT
  2. VON WILLEBRAND FACTOR (RECOMBINANT) [Suspect]
     Active Substance: VON WILLEBRAND FACTOR (RECOMBINANT)
     Dosage: 3500 INTERNATIONAL UNIT
  3. VON WILLEBRAND FACTOR (RECOMBINANT) [Suspect]
     Active Substance: VON WILLEBRAND FACTOR (RECOMBINANT)
     Dosage: 3500 INTERNATIONAL UNIT
  4. PROGESTERONE [Suspect]
     Active Substance: PROGESTERONE
     Indication: Product used for unknown indication
     Dosage: UNK

REACTIONS (5)
  - Heavy menstrual bleeding [Recovered/Resolved]
  - Depression [Unknown]
  - Weight increased [Unknown]
  - Product use in unapproved indication [Unknown]
  - Product use issue [Unknown]

NARRATIVE: CASE EVENT DATE: 20210702
